FAERS Safety Report 8826015 (Version 1)
Quarter: 2012Q4

REPORT INFORMATION
  Report Type: 
  Country: US (occurrence: US)
  Receive Date: 20121005
  Receipt Date: 20121005
  Transmission Date: 20130627
  Serious: Yes (Death)
  Sender: FDA-Public Use
  Company Number: US-ROCHE-1134202

PATIENT
  Sex: Male
  Weight: 105.78 kg

DRUGS (42)
  1. RITUXAN [Suspect]
     Indication: NON-HODGKIN^S LYMPHOMA
     Dosage: 375MG/M2, day 1 in 21 day cycle
     Route: 042
     Dates: start: 19991103
  2. RITUXAN [Suspect]
     Route: 065
     Dates: start: 19991129
  3. RITUXAN [Suspect]
     Route: 065
     Dates: start: 19991220
  4. RITUXAN [Suspect]
     Route: 065
     Dates: start: 20000207
  5. TYLENOL [Concomitant]
     Dosage: day 1 in 21 day cycle
     Route: 048
     Dates: start: 19991103
  6. TYLENOL [Concomitant]
     Route: 065
     Dates: start: 19991129
  7. TYLENOL [Concomitant]
     Route: 065
     Dates: start: 19991220
  8. TYLENOL [Concomitant]
     Route: 065
     Dates: start: 20000207
  9. BENADRYL [Concomitant]
     Dosage: day 1 in 21 day cycle
     Route: 042
     Dates: start: 19991103
  10. BENADRYL [Concomitant]
     Route: 065
     Dates: start: 19991129
  11. BENADRYL [Concomitant]
     Route: 065
     Dates: start: 19991220
  12. BENADRYL [Concomitant]
     Route: 065
     Dates: start: 20000207
  13. CYTOXAN [Concomitant]
     Dosage: 1725 mg, D5, 500 cc over 1 hour/d3
     Route: 065
     Dates: start: 19991105
  14. CYTOXAN [Concomitant]
     Route: 065
     Dates: start: 19991201
  15. CYTOXAN [Concomitant]
     Route: 065
     Dates: start: 19991222
  16. CYTOXAN [Concomitant]
     Route: 065
     Dates: start: 20000114
  17. CYTOXAN [Concomitant]
     Route: 065
     Dates: start: 20000209
  18. ADRIAMYCIN [Concomitant]
     Dosage: 115 mg IVP intravenous pyelogram
     Route: 065
     Dates: start: 19991105
  19. ADRIAMYCIN [Concomitant]
     Route: 065
     Dates: start: 19991201
  20. ADRIAMYCIN [Concomitant]
     Route: 065
     Dates: start: 19991222
  21. ADRIAMYCIN [Concomitant]
     Route: 065
     Dates: start: 20000114
  22. ADRIAMYCIN [Concomitant]
     Route: 065
     Dates: start: 20000209
  23. VINCRISTINE [Concomitant]
     Dosage: intravenous pyelogram on D3
     Route: 065
     Dates: start: 19991105
  24. VINCRISTINE [Concomitant]
     Route: 065
     Dates: start: 19991201
  25. VINCRISTINE [Concomitant]
     Route: 065
     Dates: start: 19991222
  26. VINCRISTINE [Concomitant]
     Route: 065
     Dates: start: 20000114
  27. VINCRISTINE [Concomitant]
     Route: 065
     Dates: start: 20000209
  28. PREDNISONE [Concomitant]
     Dosage: d3-d5 in 21 day cycle
     Route: 048
     Dates: start: 19991105
  29. PREDNISONE [Concomitant]
     Route: 065
     Dates: start: 19991201
  30. PREDNISONE [Concomitant]
     Route: 065
     Dates: start: 19991222
  31. PREDNISONE [Concomitant]
     Route: 065
     Dates: start: 20000114
  32. PREDNISONE [Concomitant]
     Route: 065
     Dates: start: 20000209
  33. DECADRON [Concomitant]
     Dosage: intravenous pyelogram
     Route: 065
     Dates: start: 19991105
  34. DECADRON [Concomitant]
     Route: 065
     Dates: start: 19991201
  35. DECADRON [Concomitant]
     Route: 065
     Dates: start: 19991222
  36. DECADRON [Concomitant]
     Route: 065
     Dates: start: 20000114
  37. DECADRON [Concomitant]
     Route: 065
     Dates: start: 20000209
  38. ANZEMET [Concomitant]
     Dosage: DAY 3, IN 50 CC NORMAL SALINE
     Route: 042
     Dates: start: 19991105
  39. ANZEMET [Concomitant]
     Route: 065
     Dates: start: 19991201
  40. ANZEMET [Concomitant]
     Route: 065
     Dates: start: 19991222
  41. ANZEMET [Concomitant]
     Route: 065
     Dates: start: 20000114
  42. ANZEMET [Concomitant]
     Route: 065
     Dates: start: 20000209

REACTIONS (3)
  - Death [Fatal]
  - White blood cell count decreased [Unknown]
  - Platelet count decreased [Unknown]
